FAERS Safety Report 9543237 (Version 2)
Quarter: 2013Q4

REPORT INFORMATION
  Report Type: Report from Study
  Country: JP (occurrence: JP)
  Receive Date: 20130923
  Receipt Date: 20131203
  Transmission Date: 20140711
  Serious: Yes (Death, Hospitalization, Other)
  Sender: FDA-Public Use
  Company Number: JP-SHIRE-ALL1-2013-06446

PATIENT
  Age: 55 Year
  Sex: Male

DRUGS (19)
  1. 405 (LANTHANUM CARBONATE) [Suspect]
     Indication: HYPERPHOSPHATAEMIA
     Dosage: 1250 MG, UNKNOWN
     Route: 048
     Dates: start: 20100329, end: 20130517
  2. 405 (LANTHANUM CARBONATE) [Suspect]
     Dosage: 2250 MG, UNKNOWN
     Route: 048
     Dates: start: 20090624, end: 20100328
  3. CALTAN [Concomitant]
     Indication: HYPERPHOSPHATAEMIA
     Dosage: 4500 MG, UNKNOWN
     Route: 048
     Dates: start: 20090624, end: 20090726
  4. CALTAN [Concomitant]
     Dosage: 3500 MG, UNKNOWN
     Route: 048
     Dates: start: 20090727, end: 20091224
  5. CALTAN [Concomitant]
     Dosage: 4000 MG, UNKNOWN
     Route: 048
     Dates: start: 20091225
  6. CALTAN [Concomitant]
     Dosage: 3000 MG, UNKNOWN
     Route: 048
     Dates: start: 20110908
  7. SEVELAMER HYDROCHLORIDE [Concomitant]
     Indication: HYPERPHOSPHATAEMIA
     Dosage: 2750 MG, UNKNOWN
     Route: 048
     Dates: start: 20090709, end: 20090723
  8. SEVELAMER HYDROCHLORIDE [Concomitant]
     Dosage: 2000 MG, UNKNOWN
     Route: 048
     Dates: start: 20090723, end: 20090810
  9. SEVELAMER HYDROCHLORIDE [Concomitant]
     Dosage: 1500 MG, UNKNOWN
     Route: 048
     Dates: start: 20090810, end: 20110601
  10. SEVELAMER HYDROCHLORIDE [Concomitant]
     Dosage: 1600 MG, UNKNOWN
     Route: 048
     Dates: start: 20110602
  11. NORVASC [Concomitant]
     Indication: PRODUCT USED FOR UNKNOWN INDICATION
     Dosage: 5 MG, UNKNOWN
     Route: 048
  12. NORVASC [Concomitant]
     Dosage: 10 MG, UNKNOWN
     Route: 048
  13. LASIX                              /00032601/ [Concomitant]
     Indication: PRODUCT USED FOR UNKNOWN INDICATION
     Dosage: 80 MG, UNKNOWN
     Route: 048
  14. CARDENALIN [Concomitant]
     Indication: PRODUCT USED FOR UNKNOWN INDICATION
     Dosage: 2 MG, UNKNOWN
     Route: 048
  15. KALIMATE [Concomitant]
     Indication: HYPERKALAEMIA
     Dosage: 10 G, UNKNOWN
     Route: 048
  16. SORBITOL [Concomitant]
     Indication: PRODUCT USED FOR UNKNOWN INDICATION
     Dosage: 5 G, UNKNOWN
     Route: 048
  17. PERSANTIN [Concomitant]
     Indication: THROMBOSIS PROPHYLAXIS
     Dosage: 600 MG, UNKNOWN
     Route: 048
  18. RISUMIC [Concomitant]
     Indication: PROCEDURAL HYPOTENSION
     Dosage: 20 MG, UNKNOWN
     Route: 048
  19. DIHYDERGOT                         /00017802/ [Concomitant]
     Indication: PROCEDURAL HYPOTENSION
     Dosage: 2 MG, UNKNOWN
     Route: 048

REACTIONS (4)
  - Haemorrhage [Fatal]
  - Myocardial ischaemia [Fatal]
  - Arrhythmia [Unknown]
  - Atrial fibrillation [Unknown]
